FAERS Safety Report 15208505 (Version 2)
Quarter: 2018Q3

REPORT INFORMATION
  Report Type: Spontaneous
  Country: JP (occurrence: JP)
  Receive Date: 20180727
  Receipt Date: 20180910
  Transmission Date: 20181010
  Serious: Yes (Hospitalization)
  Sender: FDA-Public Use
  Company Number: JP-JNJFOC-20180517417

PATIENT
  Age: 60 Year
  Sex: Male
  Weight: 56 kg

DRUGS (44)
  1. BACTRAMIN [Concomitant]
     Active Substance: SULFAMETHOXAZOLE\TRIMETHOPRIM
     Route: 048
     Dates: start: 20180420
  2. TAKECAB [Concomitant]
     Active Substance: VONOPRAZAN FUMURATE
     Route: 048
     Dates: start: 20180112
  3. MIYA?BM [Concomitant]
     Active Substance: CLOSTRIDIUM BUTYRICUM SPORES STRAIN M-55
     Route: 048
     Dates: start: 20180203
  4. PENTASA [Concomitant]
     Active Substance: MESALAMINE
     Route: 048
     Dates: start: 20180208
  5. MOHRUS [Concomitant]
     Active Substance: KETOPROFEN
     Route: 061
     Dates: start: 20180223
  6. PREDONINE [Concomitant]
     Active Substance: PREDNISOLONE
     Dosage: AFTER MEALS: 10 MG IN MORNING, 5 MG IN EVENING
     Route: 048
     Dates: start: 20180414
  7. ASACOL [Concomitant]
     Active Substance: MESALAMINE
     Route: 048
     Dates: start: 20180601
  8. AZANIN [Suspect]
     Active Substance: AZATHIOPRINE
     Indication: COLITIS ULCERATIVE
     Route: 048
     Dates: start: 20180501
  9. AIMIX [Concomitant]
     Active Substance: AMLODIPINE BESYLATE\IRBESARTAN
     Route: 048
     Dates: start: 20180203
  10. PENTASA [Concomitant]
     Active Substance: MESALAMINE
     Route: 048
     Dates: start: 20180601
  11. LAC?B [Concomitant]
     Active Substance: BIFIDOBACTERIUM SPP.
     Route: 048
     Dates: start: 20180208
  12. AZUNOL [Concomitant]
     Active Substance: SODIUM GUALENATE
     Dosage: FREQUENTLY
     Route: 061
     Dates: start: 20180319
  13. PREDONINE [Concomitant]
     Active Substance: PREDNISOLONE
     Dosage: AFTER MEALS: 10 MG IN MORNING, 5 MG IN EVENING
     Route: 048
     Dates: start: 20180407
  14. NIFLEC [Concomitant]
     Active Substance: BICARBONATE ION\POLYETHYLENE GLYCOLS\POTASSIUM CATION\SODIUM CHLORIDE\SODIUM SULFATE ANHYDROUS
     Route: 048
     Dates: start: 20180419
  15. NIFLEC [Concomitant]
     Active Substance: BICARBONATE ION\POLYETHYLENE GLYCOLS\POTASSIUM CATION\SODIUM CHLORIDE\SODIUM SULFATE ANHYDROUS
     Route: 048
     Dates: start: 20180523
  16. REMICADE [Suspect]
     Active Substance: INFLIXIMAB
     Indication: COLITIS ULCERATIVE
     Dosage: SECOND DOSE??ALSO REPORTED AS 320 MG
     Route: 042
     Dates: start: 20180409, end: 20180409
  17. FOSFOMYCIN CALCIUM [Concomitant]
     Active Substance: FOSFOMYCIN CALCIUM
     Route: 048
     Dates: start: 20180123
  18. AZANIN [Suspect]
     Active Substance: AZATHIOPRINE
     Indication: COLITIS ULCERATIVE
     Route: 048
     Dates: start: 20180425, end: 20180428
  19. BACTRAMIN [Concomitant]
     Active Substance: SULFAMETHOXAZOLE\TRIMETHOPRIM
     Route: 048
     Dates: start: 20180501
  20. AZUNOL [Concomitant]
     Active Substance: SODIUM GUALENATE
     Dosage: FREQUENTLY
     Route: 061
     Dates: start: 20180418
  21. SODIUM PICOSULFATE [Concomitant]
     Active Substance: SODIUM PICOSULFATE
     Route: 048
     Dates: start: 20180522
  22. TAKEPRON [Concomitant]
     Active Substance: LANSOPRAZOLE
     Route: 041
     Dates: start: 201804
  23. ARTIST [Concomitant]
     Active Substance: CARVEDILOL
     Indication: HYPERTENSION
     Route: 048
     Dates: start: 20180203
  24. ARTIST [Concomitant]
     Active Substance: CARVEDILOL
     Indication: HYPERTENSION
     Route: 048
     Dates: start: 20180506
  25. NEXIUM [Concomitant]
     Active Substance: ESOMEPRAZOLE MAGNESIUM
     Route: 048
     Dates: start: 20180501
  26. PREDONINE [Concomitant]
     Active Substance: PREDNISOLONE
     Route: 048
  27. IRBETAN [Concomitant]
     Active Substance: IRBESARTAN
     Route: 048
     Dates: start: 20180203
  28. ASPARA POTASSIUM [Concomitant]
     Active Substance: POTASSIUM ASPARTATE
     Route: 048
     Dates: start: 20180210
  29. REMICADE [Suspect]
     Active Substance: INFLIXIMAB
     Indication: COLITIS ULCERATIVE
     Dosage: FIRST DOSE
     Route: 042
     Dates: start: 20180326, end: 20180326
  30. POTASSIUM CHLORIDE. [Concomitant]
     Active Substance: POTASSIUM CHLORIDE
     Route: 048
     Dates: start: 20180223
  31. AZUNOL [Concomitant]
     Active Substance: SODIUM GUALENATE
     Route: 061
     Dates: start: 20180529
  32. PREDONINE [Concomitant]
     Active Substance: PREDNISOLONE
     Dosage: AFTER MEALS: 10 MG IN MORNING, 5 MG IN EVENING
     Route: 048
     Dates: start: 20180303
  33. PREDONINE [Concomitant]
     Active Substance: PREDNISOLONE
     Dosage: AFTER MEALS: 10 MG IN MORNING, 5 MG IN EVENING
     Route: 048
     Dates: start: 20180421
  34. PETHIDINE HYDROCHLORIDE [Concomitant]
     Active Substance: MEPERIDINE HYDROCHLORIDE
     Route: 051
     Dates: start: 20180419, end: 20180419
  35. AZANIN [Suspect]
     Active Substance: AZATHIOPRINE
     Indication: COLITIS ULCERATIVE
     Route: 048
     Dates: start: 20180411
  36. NEXIUM [Concomitant]
     Active Substance: ESOMEPRAZOLE MAGNESIUM
     Route: 048
     Dates: start: 20180405, end: 201804
  37. MESALAZINE [Concomitant]
     Active Substance: MESALAMINE
     Route: 065
  38. ALBUMIN TANNATE [Concomitant]
     Active Substance: ALBUMIN BOVINE\TANNIC ACID
     Route: 048
     Dates: start: 20180228
  39. PREDONINE [Concomitant]
     Active Substance: PREDNISOLONE
     Route: 048
     Dates: start: 20180331
  40. BIOFERMIN [Concomitant]
     Active Substance: BACILLUS SUBTILIS\LACTOBACILLUS ACIDOPHILUS\STREPTOCOCCUS FAECAIS
     Route: 048
     Dates: start: 20180123
  41. CRAVIT [Concomitant]
     Active Substance: LEVOFLOXACIN
     Route: 048
     Dates: start: 20180203
  42. BUDESONIDE. [Concomitant]
     Active Substance: BUDESONIDE
     Route: 054
     Dates: start: 20180310
  43. LANSOPRAZOLE. [Concomitant]
     Active Substance: LANSOPRAZOLE
     Route: 048
     Dates: start: 20180404
  44. NALOXONE HYDROCHLORIDE. [Concomitant]
     Active Substance: NALOXONE HYDROCHLORIDE
     Route: 065
     Dates: start: 20180419, end: 20180419

REACTIONS (4)
  - Lung disorder [Recovering/Resolving]
  - Weight decreased [Unknown]
  - Cholecystitis [Unknown]
  - Colitis ulcerative [Not Recovered/Not Resolved]

NARRATIVE: CASE EVENT DATE: 2018
